FAERS Safety Report 21859553 (Version 2)
Quarter: 2023Q1

REPORT INFORMATION
  Report Type: Report from Study
  Country: CN (occurrence: CN)
  Receive Date: 20230113
  Receipt Date: 20230127
  Transmission Date: 20230418
  Serious: Yes (Hospitalization)
  Sender: FDA-Public Use
  Company Number: CN-PFIZER INC-PV202300003102

PATIENT
  Age: 61 Year
  Sex: Female
  Weight: 46 kg

DRUGS (6)
  1. ENCORAFENIB [Suspect]
     Active Substance: ENCORAFENIB
     Indication: Colorectal cancer metastatic
     Dosage: 300 MG, 1X/DAY, TROCHE
     Route: 048
     Dates: start: 20221010, end: 20230105
  2. CETUXIMAB [Suspect]
     Active Substance: CETUXIMAB
     Indication: Colorectal cancer metastatic
     Dosage: 700 MG, Q2W, INJECTION
     Route: 041
     Dates: start: 20221010, end: 20221208
  3. ACARBOSE [Concomitant]
     Active Substance: ACARBOSE
     Indication: Type 2 diabetes mellitus
     Dosage: 1 PIECE, QD, TROCHE
     Route: 048
     Dates: start: 2013
  4. PREDNISONE [Concomitant]
     Active Substance: PREDNISONE
     Indication: Systemic lupus erythematosus
     Dosage: 1 PIECE, QD, TROCHE
     Route: 048
     Dates: start: 1991
  5. HYDROXYCHLOROQUINE [Concomitant]
     Active Substance: HYDROXYCHLOROQUINE
     Indication: Lupus nephritis
     Dosage: 3 PIECE, QD, TROCHE
     Route: 048
     Dates: start: 2002
  6. ATORVASTATIN [Concomitant]
     Active Substance: ATORVASTATIN
     Indication: Hyperlipidaemia
     Dosage: 1 PIECE, QD, TROCHE
     Route: 048
     Dates: start: 2002

REACTIONS (1)
  - Myocardial infarction [Not Recovered/Not Resolved]

NARRATIVE: CASE EVENT DATE: 20230104
